FAERS Safety Report 8462575-5 (Version None)
Quarter: 2012Q2

REPORT INFORMATION
  Report Type: 
  Country: None (occurrence: None)
  Receive Date: 20120625
  Receipt Date: 20120504
  Transmission Date: 20120825
  Serious: No
  Sender: FDA-Public Use
  Company Number: US-BAUSCH-2012BL001293

PATIENT
  Age: 31 Year
  Sex: Female

DRUGS (8)
  1. PRED FORTE [Concomitant]
     Indication: PHOTOREFRACTIVE KERATECTOMY
     Route: 047
     Dates: start: 20111215, end: 20111215
  2. PRED FORTE [Concomitant]
     Indication: POSTOPERATIVE CARE
     Route: 047
  3. BESIVANCE [Suspect]
     Route: 047
     Dates: start: 20111215
  4. BESIVANCE [Suspect]
     Route: 047
     Dates: start: 20111215
  5. BESIVANCE [Suspect]
     Indication: POSTOPERATIVE CARE
     Route: 047
     Dates: start: 20111215, end: 20111215
  6. BROMFENAC [Concomitant]
     Indication: POSTOPERATIVE CARE
     Route: 047
     Dates: start: 20111215
  7. BESIVANCE [Suspect]
     Indication: OFF LABEL USE
     Route: 047
     Dates: start: 20111215, end: 20111215
  8. BROMFENAC [Concomitant]
     Indication: PHOTOREFRACTIVE KERATECTOMY
     Route: 047
     Dates: start: 20111215, end: 20111215

REACTIONS (5)
  - CORNEAL OPACITY [None]
  - IMPAIRED HEALING [None]
  - DIPLOPIA [None]
  - VISION BLURRED [None]
  - CORNEAL DISORDER [None]
